FAERS Safety Report 19711844 (Version 2)
Quarter: 2021Q4

REPORT INFORMATION
  Report Type: Report from Study
  Country: US (occurrence: US)
  Receive Date: 20210817
  Receipt Date: 20211220
  Transmission Date: 20220303
  Serious: Yes (Other)
  Sender: FDA-Public Use
  Company Number: US-BEIGENE, LTD-BGN-2021-003310

PATIENT

DRUGS (1)
  1. BRUKINSA [Suspect]
     Active Substance: ZANUBRUTINIB
     Indication: Waldenstrom^s macroglobulinaemia
     Dosage: 160 MILLIGRAM, BID
     Route: 048
     Dates: start: 20210724

REACTIONS (8)
  - Ecchymosis [Unknown]
  - Feeling jittery [Unknown]
  - Dyspepsia [Recovering/Resolving]
  - Rash [Unknown]
  - Contusion [Unknown]
  - Muscle spasms [Unknown]
  - Product dose omission issue [Unknown]
  - Off label use [Unknown]

NARRATIVE: CASE EVENT DATE: 20210724
